FAERS Safety Report 8181263-6 (Version None)
Quarter: 2012Q1

REPORT INFORMATION
  Report Type: 
  Country: None (occurrence: None)
  Receive Date: 20120302
  Receipt Date: 20120227
  Transmission Date: 20120608
  Serious: Yes (Other)
  Sender: FDA-Public Use
  Company Number: US-BAYER-2011-025777

PATIENT
  Sex: Male
  Weight: 82.993 kg

DRUGS (37)
  1. MAGNEVIST [Suspect]
     Indication: NUCLEAR MAGNETIC RESONANCE IMAGING BRAIN
     Dosage: UNK
     Dates: start: 20061113
  2. OMNISCAN [Suspect]
     Indication: NUCLEAR MAGNETIC RESONANCE IMAGING
     Dosage: 20 ML, ONCE
     Dates: start: 20050124, end: 20050124
  3. RENAGEL [Concomitant]
  4. AMLODIPINE [Concomitant]
  5. PROGRAF [Concomitant]
  6. SENSIPAR [Concomitant]
  7. MAGNEVIST [Suspect]
     Dosage: UNK
     Dates: start: 20050808
  8. GADOLINIUM IN UNSPECIFIED DRUG [Suspect]
     Dosage: UNK, ONCE
     Dates: start: 20070604, end: 20070604
  9. PROGRAF [Concomitant]
  10. OMNISCAN [Suspect]
     Indication: NUCLEAR MAGNETIC RESONANCE IMAGING BRAIN
     Dosage: 20 ML, ONCE
     Dates: start: 20050128, end: 20050128
  11. OMNISCAN [Suspect]
     Dosage: 20 ML, ONCE
     Dates: start: 20050228, end: 20050228
  12. MINOXIDIL [Concomitant]
  13. LANTUS [Concomitant]
  14. HYDRALAZINE HCL [Concomitant]
  15. MAGNEVIST [Suspect]
     Dosage: 20 ML, ONCE
     Route: 042
     Dates: start: 20050617, end: 20050617
  16. LOPRESSOR [Concomitant]
  17. MYCOPHENOLATE MOFETIL (CELLCEPT) [Concomitant]
  18. LEVOTHROID [Concomitant]
  19. EPOGEN [Concomitant]
  20. VENOFER [Concomitant]
  21. MAGNEVIST [Suspect]
     Dosage: UNK
     Dates: start: 20051031
  22. OMNISCAN [Suspect]
     Dosage: 20 ML, ONCE
     Dates: start: 20050328, end: 20050328
  23. VASOTEC [Concomitant]
  24. ARANESP [Concomitant]
  25. OMNISCAN [Suspect]
     Dosage: 20 ML, ONCE
     Dates: start: 20050425, end: 20050425
  26. OMNISCAN [Suspect]
     Dosage: 20 ML, ONCE
     Dates: start: 20060422, end: 20060422
  27. GADOLINIUM IN UNSPECIFIED DRUG [Suspect]
     Indication: NUCLEAR MAGNETIC RESONANCE IMAGING BRAIN
     Dosage: UNK, ONCE
     Dates: start: 20070212, end: 20070212
  28. GADOLINIUM IN UNSPECIFIED DRUG [Suspect]
     Dosage: UNK, ONCE
     Dates: start: 20070910, end: 20070910
  29. PREDNISONE TAB [Concomitant]
  30. PHOSLO [Concomitant]
  31. LASIX [Concomitant]
  32. METHOTREXATE [Concomitant]
  33. MAGNEVIST [Suspect]
     Dosage: UNK
     Dates: start: 20060724
  34. MAGNEVIST [Suspect]
     Dosage: UNK
     Dates: start: 20060130
  35. MAGNEVIST [Suspect]
     Dosage: 15 ML, ONCE
     Route: 042
     Dates: start: 20041112, end: 20041112
  36. RENVELA [Concomitant]
  37. NOVOLOG [Concomitant]

REACTIONS (24)
  - PAIN [None]
  - PRURITUS GENERALISED [None]
  - ARTHRALGIA [None]
  - JOINT RANGE OF MOTION DECREASED [None]
  - FIBROSIS [None]
  - SKIN PLAQUE [None]
  - RASH PAPULAR [None]
  - SKIN HYPERTROPHY [None]
  - DRY SKIN [None]
  - GAIT DISTURBANCE [None]
  - SKIN TIGHTNESS [None]
  - NEPHROGENIC SYSTEMIC FIBROSIS [None]
  - JOINT STIFFNESS [None]
  - ERYTHEMA [None]
  - SKIN HYPERPIGMENTATION [None]
  - SKIN FIBROSIS [None]
  - SKIN INDURATION [None]
  - EXTREMITY CONTRACTURE [None]
  - PRURITUS [None]
  - SKIN SWELLING [None]
  - MUSCULOSKELETAL STIFFNESS [None]
  - OEDEMA PERIPHERAL [None]
  - RASH [None]
  - SKIN EXFOLIATION [None]
